FAERS Safety Report 26032172 (Version 2)
Quarter: 2025Q4

REPORT INFORMATION
  Report Type: Spontaneous
  Country: US (occurrence: US)
  Receive Date: 20251112
  Receipt Date: 20251119
  Transmission Date: 20260118
  Serious: No
  Sender: SANDOZ
  Company Number: US-SANDOZ-SDZ2025US073675

PATIENT
  Sex: Female

DRUGS (3)
  1. ESTRADIOL [Suspect]
     Active Substance: ESTRADIOL
     Dosage: UNK, BIW
     Route: 062
  2. ESTRADIOL [Suspect]
     Active Substance: ESTRADIOL
     Indication: Product used for unknown indication
     Dosage: UNK UNK, BIW
     Route: 062
  3. ESTRADIOL [Suspect]
     Active Substance: ESTRADIOL
     Dosage: UNK, BIW
     Route: 062

REACTIONS (3)
  - Circumstance or information capable of leading to medication error [Unknown]
  - Poor quality device used [Unknown]
  - Device adhesion issue [Unknown]
